FAERS Safety Report 8958211 (Version 1)
Quarter: 2012Q4

REPORT INFORMATION
  Report Type: 
  Country: PL (occurrence: PL)
  Receive Date: 20121211
  Receipt Date: 20121211
  Transmission Date: 20130627
  Serious: Yes (Other)
  Sender: FDA-Public Use
  Company Number: PHHY2012PL110301

PATIENT
  Age: 53 Year
  Sex: Male

DRUGS (25)
  1. CERTICAN [Suspect]
     Indication: IMMUNOSUPPRESSION
     Dosage: 0.75 mg, BID
     Dates: start: 200804
  2. CERTICAN [Suspect]
     Dosage: 1.75 mg, alternatively every other day
  3. NEORAL [Suspect]
     Dosage: 350 mg, BID
     Dates: start: 2006
  4. NEORAL [Suspect]
     Dosage: 50 mg, BID
  5. NEORAL [Suspect]
     Dosage: 25 mg, UNK
     Dates: start: 20100804
  6. ENCORTON [Concomitant]
     Dosage: 5 mg, UNK
  7. OMEPRAZOLE [Concomitant]
     Dosage: 20 mg, BID
  8. AMLOZEK [Concomitant]
     Dosage: UNK
     Dates: start: 200812
  9. BISOCARD [Concomitant]
     Dosage: UNK
     Dates: start: 200812
  10. VALSARTAN [Concomitant]
     Dosage: UNK
     Dates: start: 200812
  11. IPOREL [Concomitant]
     Dosage: UNK
     Dates: start: 200812
  12. FUROSEMIDE [Concomitant]
     Dosage: UNK
     Dates: start: 200812
  13. TERTENSIF [Concomitant]
     Dosage: UNK
     Dates: start: 200812
  14. DIUVER [Concomitant]
     Dosage: UNK
     Dates: start: 200812
  15. MONONIT [Concomitant]
     Dosage: UNK
     Dates: start: 200812
  16. ACARD [Concomitant]
     Dosage: UNK
     Dates: start: 200812
  17. ATORVASTATINUM [Concomitant]
     Dosage: UNK
     Dates: start: 200812
  18. FURAGIN [Concomitant]
     Dosage: UNK
     Dates: start: 200812
  19. HEVIRAN [Concomitant]
     Dosage: UNK
     Dates: start: 200812
  20. GABAPENTIN [Concomitant]
     Dosage: UNK
  21. MILURIT [Concomitant]
  22. CALCIUM CARBONICUM [Concomitant]
  23. ALFADIOL [Concomitant]
  24. SORBIFER DURULES [Concomitant]
  25. SODIUM BICARBONATE [Concomitant]

REACTIONS (15)
  - Coronary artery disease [Unknown]
  - Renal injury [Unknown]
  - Spinal osteoarthritis [Unknown]
  - Hypoaesthesia [Unknown]
  - Gastritis [Unknown]
  - Gastric mucosa erythema [Unknown]
  - Gastric mucosal hypertrophy [Unknown]
  - Gastrointestinal oedema [Unknown]
  - Gastritis haemorrhagic [Unknown]
  - Gastritis erosive [Unknown]
  - Polyp [Unknown]
  - Candidiasis [Unknown]
  - Helicobacter infection [Unknown]
  - Haemorrhoids [Unknown]
  - Arthropod bite [Unknown]
